FAERS Safety Report 8465188-4 (Version None)
Quarter: 2012Q2

REPORT INFORMATION
  Report Type: 
  Country: None (occurrence: None)
  Receive Date: 20120626
  Receipt Date: 20120619
  Transmission Date: 20120825
  Serious: Yes (Hospitalization)
  Sender: FDA-Public Use
  Company Number: PHHY2012AU044802

PATIENT
  Sex: Male

DRUGS (6)
  1. VALPROIC ACID [Concomitant]
  2. WARFARIN SODIUM [Concomitant]
     Indication: ATRIAL FIBRILLATION
  3. CLOZARIL [Suspect]
     Dosage: 150 MG, UNK
     Dates: start: 20120510, end: 20120524
  4. QUETIAPINE [Concomitant]
  5. METOPROLOL TARTRATE [Concomitant]
     Indication: ATRIAL FIBRILLATION
  6. DIGOXIN [Concomitant]
     Indication: ATRIAL FIBRILLATION

REACTIONS (6)
  - MYOCARDITIS [None]
  - SEPSIS [None]
  - MALAISE [None]
  - PNEUMONIA [None]
  - NEUROLEPTIC MALIGNANT SYNDROME [None]
  - CEREBROVASCULAR ACCIDENT [None]
